FAERS Safety Report 23097808 (Version 1)
Quarter: 2023Q4

REPORT INFORMATION
  Report Type: Report from Study
  Country: CA (occurrence: CA)
  Receive Date: 20231023
  Receipt Date: 20231023
  Transmission Date: 20240110
  Serious: Yes (Other)
  Sender: FDA-Public Use
  Company Number: CA-ABBVIE-5459118

PATIENT
  Sex: Male

DRUGS (1)
  1. SKYRIZI [Suspect]
     Active Substance: RISANKIZUMAB-RZAA
     Indication: Psoriasis
     Route: 058
     Dates: start: 20200303

REACTIONS (5)
  - Bone cancer [Unknown]
  - Skin cancer [Unknown]
  - Lung neoplasm malignant [Unknown]
  - Hepatic cancer [Unknown]
  - Terminal state [Unknown]
